FAERS Safety Report 7070026 (Version 5)
Quarter: 2013Q2

REPORT INFORMATION
  Report Type: Report from Study
  Country: US (occurrence: US)
  Receive Date: 20090803
  Receipt Date: 20130617
  Transmission Date: 20140414
  Serious: Yes (Hospitalization, Other)
  Sender: FDA-Public Use
  Company Number: PHHO2009US09383

PATIENT
  Age: 63 Year
  Sex: Male
  Weight: 77.55 kg

DRUGS (3)
  1. AFINITOR [Suspect]
     Indication: CLEAR CELL RENAL CELL CARCINOMA
     Dosage: 35 MG / WEEK
     Route: 048
     Dates: start: 20090507, end: 20090720
  2. SORAFENIB [Suspect]
     Indication: CLEAR CELL RENAL CELL CARCINOMA
     Dosage: 400 MG, QD
     Route: 048
     Dates: start: 20090507, end: 20090723
  3. METOPROLOL [Concomitant]

REACTIONS (11)
  - Cerebrovascular accident [Recovered/Resolved]
  - Disorientation [Recovered/Resolved]
  - Dysarthria [Recovered/Resolved]
  - VIIth nerve paralysis [Recovered/Resolved]
  - Hemiparesis [Recovered/Resolved]
  - Diabetes mellitus inadequate control [Recovered/Resolved]
  - Metabolic acidosis [Recovered/Resolved]
  - Blood glucose increased [Recovered/Resolved]
  - Acute myocardial infarction [Recovered/Resolved]
  - Cardiac failure congestive [Recovered/Resolved]
  - Thrombocytosis [Unknown]
